FAERS Safety Report 7431890-6 (Version None)
Quarter: 2011Q2

REPORT INFORMATION
  Report Type: 
  Country: None (occurrence: None)
  Receive Date: 20110422
  Receipt Date: 20110413
  Transmission Date: 20111010
  Serious: Yes (Disabling)
  Sender: FDA-Public Use
  Company Number: DE-JNJFOC-20101104149

PATIENT
  Age: 80 Year
  Sex: Male

DRUGS (6)
  1. AGGRENOX [Concomitant]
     Route: 065
  2. CEFUROXIME [Suspect]
     Indication: BRONCHITIS
     Dosage: TOTAL OF 12 TABLETS
     Route: 065
  3. KETEK [Suspect]
     Indication: BRONCHITIS
     Dosage: TOTAL OF 10 DOSES EACH
     Route: 048
  4. IBUPROFENE RATIOPHARM [Concomitant]
     Route: 065
  5. TAVANIC [Suspect]
     Indication: BRONCHITIS
     Dosage: TOTAL OF 10 DOSES EACH
     Route: 048
  6. XUSAL [Suspect]
     Indication: ILL-DEFINED DISORDER
     Route: 065

REACTIONS (3)
  - DRY MOUTH [None]
  - DRUG INEFFECTIVE [None]
  - DYSGEUSIA [None]
